FAERS Safety Report 5522364-8 (Version None)
Quarter: 2007Q4

REPORT INFORMATION
  Report Type: 
  Country: None (occurrence: None)
  Receive Date: 20071120
  Receipt Date: 20071113
  Transmission Date: 20080405
  Serious: Yes (Other)
  Sender: FDA-Public Use
  Company Number: US-GENENTECH-239577

PATIENT
  Sex: Female
  Weight: 72.562 kg

DRUGS (8)
  1. LUCENTIS [Suspect]
     Indication: MACULAR DEGENERATION
     Dosage: 0.1 ML, UNK
     Route: 031
     Dates: start: 20070323
  2. ASPIRIN [Concomitant]
     Indication: DRUG USE FOR UNKNOWN INDICATION
  3. NORVASC [Concomitant]
     Indication: DRUG USE FOR UNKNOWN INDICATION
  4. CRESTOR [Concomitant]
     Indication: DRUG USE FOR UNKNOWN INDICATION
  5. DIOVAN [Concomitant]
     Indication: DRUG USE FOR UNKNOWN INDICATION
  6. OCUVITE [Concomitant]
     Indication: DRUG USE FOR UNKNOWN INDICATION
  7. LEBATOLOL (UNK INGREDIENTS) [Concomitant]
     Indication: DRUG USE FOR UNKNOWN INDICATION
  8. PROTONIX [Concomitant]
     Indication: DRUG USE FOR UNKNOWN INDICATION

REACTIONS (1)
  - VISUAL ACUITY REDUCED [None]
